FAERS Safety Report 7733513-5 (Version None)
Quarter: 2011Q3

REPORT INFORMATION
  Report Type: 
  Country: None (occurrence: None)
  Receive Date: 20110907
  Receipt Date: 20110907
  Transmission Date: 20111222
  Serious: Yes (Life-Threatening, Hospitalization, Disabling)
  Sender: FDA-Public Use
  Company Number: None

PATIENT
  Age: 34 Year
  Sex: Female
  Weight: 90.718 kg

DRUGS (7)
  1. MIRENA [Suspect]
     Indication: CONTRACEPTION
     Dosage: 20MCG
     Route: 015
     Dates: start: 20050706, end: 20070404
  2. FLONASE [Concomitant]
  3. PATANOL [Concomitant]
  4. MULTI-VITAMIN [Concomitant]
  5. CALCUIM +D +MG [Concomitant]
  6. CLARINEX [Concomitant]
  7. COLACE [Concomitant]

REACTIONS (5)
  - ROAD TRAFFIC ACCIDENT [None]
  - JOINT INJURY [None]
  - HAEMORRHAGE [None]
  - RETAINED PLACENTA OR MEMBRANES [None]
  - PLACENTA ACCRETA [None]
